FAERS Safety Report 13641701 (Version 1)
Quarter: 2017Q2

REPORT INFORMATION
  Report Type: Spontaneous
  Country: US (occurrence: US)
  Receive Date: 20170612
  Receipt Date: 20170612
  Transmission Date: 20170830
  Serious: No
  Sender: FDA-Public Use
  Company Number: US-BAYER-2017-111890

PATIENT
  Age: 68 Year
  Sex: Female
  Weight: 63.49 kg

DRUGS (1)
  1. ALEVE [Suspect]
     Active Substance: NAPROXEN SODIUM
     Dosage: 1 DF, QD
     Route: 048
     Dates: start: 2016, end: 20170609

REACTIONS (3)
  - Drug ineffective [None]
  - Condition aggravated [Unknown]
  - Incorrect drug administration duration [None]

NARRATIVE: CASE EVENT DATE: 2016
